FAERS Safety Report 10643122 (Version 2)
Quarter: 2017Q2

REPORT INFORMATION
  Report Type: Report from Study
  Country: GB (occurrence: GB)
  Receive Date: 20141210
  Receipt Date: 20170407
  Transmission Date: 20170829
  Serious: Yes (Hospitalization)
  Sender: FDA-Public Use
  Company Number: GB-JNJFOC-20141119103

PATIENT
  Age: 77 Year
  Sex: Female
  Weight: 67.5 kg

DRUGS (19)
  1. DIGOXIN. [Concomitant]
     Active Substance: DIGOXIN
     Route: 065
     Dates: start: 20110401
  2. DOXAZOSIN [Concomitant]
     Active Substance: DOXAZOSIN\DOXAZOSIN MESYLATE
     Route: 065
     Dates: start: 20110401
  3. WARFARIN [Concomitant]
     Active Substance: WARFARIN
     Route: 065
     Dates: start: 20110401
  4. AMOXICILLIN. [Concomitant]
     Active Substance: AMOXICILLIN
     Route: 065
     Dates: start: 20130115
  5. FLUOXETINE [Concomitant]
     Active Substance: FLUOXETINE HYDROCHLORIDE
     Route: 065
     Dates: start: 20130606
  6. FEMARA [Concomitant]
     Active Substance: LETROZOLE
     Route: 065
     Dates: start: 20170112
  7. METFORMIN [Concomitant]
     Active Substance: METFORMIN HYDROCHLORIDE
     Route: 065
     Dates: start: 20110401
  8. COCODAMOL [Concomitant]
     Active Substance: ACETAMINOPHEN\CODEINE PHOSPHATE
     Route: 065
     Dates: start: 20110401
  9. FUROSEMIDE. [Concomitant]
     Active Substance: FUROSEMIDE
     Route: 065
     Dates: start: 20110401
  10. STELARA [Suspect]
     Active Substance: USTEKINUMAB
     Indication: PSORIASIS
     Route: 058
     Dates: start: 20150303, end: 20170124
  11. STELARA [Suspect]
     Active Substance: USTEKINUMAB
     Indication: PSORIASIS
     Route: 058
     Dates: start: 20140415, end: 20140825
  12. LANSOPRAZOLE. [Concomitant]
     Active Substance: LANSOPRAZOLE
     Route: 065
     Dates: start: 20130115
  13. APIXABAN [Concomitant]
     Active Substance: APIXABAN
     Route: 065
     Dates: start: 20131021
  14. PREGABALIN. [Concomitant]
     Active Substance: PREGABALIN
     Route: 065
     Dates: start: 20110401
  15. IRBESARTAN. [Concomitant]
     Active Substance: IRBESARTAN
     Route: 065
     Dates: start: 20110401
  16. DABIGATRAN [Concomitant]
     Active Substance: DABIGATRAN
     Route: 065
     Dates: start: 20130917, end: 20131004
  17. STELARA [Suspect]
     Active Substance: USTEKINUMAB
     Indication: PSORIASIS
     Route: 058
     Dates: start: 20110330, end: 20130603
  18. DIPROBASE [Concomitant]
     Active Substance: CHLOROCRESOL
     Route: 065
     Dates: start: 20110401
  19. FLUOXETINE [Concomitant]
     Active Substance: FLUOXETINE HYDROCHLORIDE
     Route: 065
     Dates: start: 20120626, end: 20130307

REACTIONS (1)
  - Colon cancer [Recovered/Resolved with Sequelae]

NARRATIVE: CASE EVENT DATE: 20130115
